FAERS Safety Report 14776673 (Version 1)
Quarter: 2018Q2

REPORT INFORMATION
  Report Type: Spontaneous
  Country: FR (occurrence: FR)
  Receive Date: 20180419
  Receipt Date: 20180419
  Transmission Date: 20180711
  Serious: Yes (Other)
  Sender: FDA-Public Use
  Company Number: FR-MERCK KGAA-2045987

PATIENT
  Age: 72 Year
  Sex: Female
  Weight: 80 kg

DRUGS (1)
  1. NOVOTHYROX [Suspect]
     Active Substance: LEVOTHYROXINE SODIUM
     Indication: HYPOTHYROIDISM
     Route: 048
     Dates: start: 20170727

REACTIONS (16)
  - Diarrhoea [Not Recovered/Not Resolved]
  - Hypertension [Recovered/Resolved]
  - Stress [None]
  - Malaise [None]
  - Drug intolerance [None]
  - Hyperthyroidism [None]
  - Headache [Recovered/Resolved]
  - Crying [Not Recovered/Not Resolved]
  - Weight abnormal [Not Recovered/Not Resolved]
  - Palpitations [Recovering/Resolving]
  - Constipation [Not Recovered/Not Resolved]
  - Tri-iodothyronine free decreased [None]
  - Insomnia [Recovered/Resolved]
  - Hot flush [None]
  - Arthralgia [None]
  - Skin disorder [Not Recovered/Not Resolved]

NARRATIVE: CASE EVENT DATE: 201708
